FAERS Safety Report 8614971-0 (Version None)
Quarter: 2012Q3

REPORT INFORMATION
  Report Type: 
  Country: None (occurrence: None)
  Receive Date: 20120809
  Receipt Date: 20120725
  Transmission Date: 20120928
  Serious: Yes (Hospitalization, Disabling, Other)
  Sender: FDA-Public Use
  Company Number: 2012-001492

PATIENT
  Age: 59 Year
  Sex: Female

DRUGS (13)
  1. AVAMDOA (ROSIGLITAZONE MALEATE) [Concomitant]
  2. NIASPAN [Concomitant]
  3. HYDROCHLOROTHIAZIDE W/LOSARTAN (HYDROCHLOROTHIAZIDE, LOSARTAN) [Concomitant]
  4. LOSARTAN POTASSIUM [Concomitant]
  5. ACTONEL [Suspect]
     Dosage: DOSAGE/ FREQUENCY UNK, ORAL
     Route: 048
  6. LEXAPRO [Concomitant]
  7. CITALOPRAM [Concomitant]
  8. GLIMEPIRIDE [Concomitant]
  9. ATELVIA [Suspect]
     Dosage: 35 MG, 1/WEEK, ORAL
     Route: 048
  10. ARIMIDEX [Concomitant]
  11. PRILOSEC [Concomitant]
  12. LIPITOR [Concomitant]
  13. VAGIFEM [Concomitant]

REACTIONS (4)
  - FALL [None]
  - DEVICE BREAKAGE [None]
  - RADIUS FRACTURE [None]
  - FEMUR FRACTURE [None]
